FAERS Safety Report 23638525 (Version 3)
Quarter: 2024Q3

REPORT INFORMATION
  Report Type: Spontaneous
  Country: FR (occurrence: FR)
  Receive Date: 20240315
  Receipt Date: 20240918
  Transmission Date: 20241017
  Serious: Yes (Other)
  Sender: RANBAXY
  Company Number: FR-SUN PHARMACEUTICAL INDUSTRIES LTD-2024R1-436517

PATIENT
  Age: 70 Year
  Sex: Male

DRUGS (6)
  1. CARBOPLATIN [Suspect]
     Active Substance: CARBOPLATIN
     Indication: Chemotherapy
     Dosage: UNK
     Route: 065
  2. PACLITAXEL [Suspect]
     Active Substance: PACLITAXEL
     Indication: Chemotherapy
     Dosage: UNK
     Route: 065
  3. FLUOROURACIL [Suspect]
     Active Substance: FLUOROURACIL
     Indication: Chemotherapy
     Dosage: 1000 MILLIGRAM/SQ. METER
     Route: 065
  4. CETUXIMAB [Suspect]
     Active Substance: CETUXIMAB
     Indication: Chemotherapy
     Dosage: 400 MILLIGRAM/SQ. METER
     Route: 065
  5. CETUXIMAB [Suspect]
     Active Substance: CETUXIMAB
     Dosage: 250 MILLIGRAM/SQ. METER EVERY 3 WEEKS
     Route: 065
  6. NIVOLUMAB [Suspect]
     Active Substance: NIVOLUMAB
     Indication: Chemotherapy
     Route: 065

REACTIONS (2)
  - Treatment failure [Unknown]
  - Disease progression [Unknown]
